FAERS Safety Report 25181100 (Version 1)
Quarter: 2025Q2

REPORT INFORMATION
  Report Type: Spontaneous
  Country: US (occurrence: US)
  Receive Date: 20250410
  Receipt Date: 20250410
  Transmission Date: 20250716
  Serious: Yes (Hospitalization, Other)
  Sender: AMGEN
  Company Number: US-AMGEN-USASP2025065047

PATIENT
  Age: 36 Year
  Sex: Female

DRUGS (5)
  1. BEVACIZUMAB [Suspect]
     Active Substance: BEVACIZUMAB
     Indication: Adenosquamous carcinoma of the cervix
     Route: 065
  2. CISPLATIN [Concomitant]
     Active Substance: CISPLATIN
     Indication: Adenosquamous carcinoma of the cervix
  3. CARBOPLATIN [Concomitant]
     Active Substance: CARBOPLATIN
     Indication: Adenosquamous carcinoma of the cervix
  4. PACLITAXEL [Concomitant]
     Active Substance: PACLITAXEL
     Indication: Adenosquamous carcinoma of the cervix
  5. PEMBROLIZUMAB [Concomitant]
     Active Substance: PEMBROLIZUMAB
     Indication: Adenosquamous carcinoma of the cervix

REACTIONS (6)
  - Proctitis [Unknown]
  - Gastrointestinal ischaemia [Unknown]
  - Haemoglobin decreased [Unknown]
  - Abdominal abscess [Unknown]
  - Pelvic abscess [Unknown]
  - Female genital tract fistula [Unknown]
